FAERS Safety Report 5692041-1 (Version None)
Quarter: 2008Q2

REPORT INFORMATION
  Report Type: 
  Country: None (occurrence: None)
  Receive Date: 20080402
  Receipt Date: 20080328
  Transmission Date: 20081010
  Serious: Yes (Other)
  Sender: FDA-Public Use
  Company Number: ES-WYE-G01222808

PATIENT
  Age: 66 Year
  Sex: Female

DRUGS (3)
  1. TIGECYCLINE [Suspect]
     Indication: PNEUMONIA
     Dosage: UNKNOWN
  2. VANCOMYCIN [Concomitant]
     Dosage: UNKNOWN
  3. COLISTIN SULFATE [Concomitant]
     Dosage: UNKNOWN

REACTIONS (5)
  - BLOOD ALKALINE PHOSPHATASE INCREASED [None]
  - GAMMA-GLUTAMYLTRANSFERASE INCREASED [None]
  - HYPERBILIRUBINAEMIA [None]
  - SEPTIC SHOCK [None]
  - THROMBOCYTOPENIA [None]
